FAERS Safety Report 5677374-7 (Version None)
Quarter: 2008Q1

REPORT INFORMATION
  Report Type: 
  Country: None (occurrence: None)
  Receive Date: 20080324
  Receipt Date: 20080318
  Transmission Date: 20080703
  Serious: Yes (Death)
  Sender: FDA-Public Use
  Company Number: FR-ASTRAZENECA-2008CG00430

PATIENT
  Age: 32008 Day
  Sex: Female

DRUGS (10)
  1. NEXIUM [Suspect]
     Route: 048
  2. PREVISCAN [Suspect]
     Dosage: 0.25 DF EVERY EVEN DAY, 0.5 DF EVERY UNEVEN DAY
     Route: 048
  3. ALLOPURINOL [Suspect]
     Route: 048
  4. CARDENSIEL [Suspect]
     Route: 048
  5. ELISOR [Suspect]
     Route: 048
  6. TOPALGIC [Suspect]
  7. ZOLOFT [Suspect]
     Route: 048
  8. SOLUPRED [Suspect]
     Route: 048
  9. LASILIX [Suspect]
     Route: 048
  10. FORLAX [Suspect]

REACTIONS (9)
  - CEREBRAL HAEMORRHAGE [None]
  - COMA [None]
  - FALL [None]
  - HAEMATOMA [None]
  - HUMERUS FRACTURE [None]
  - INTERNATIONAL NORMALISED RATIO INCREASED [None]
  - SPINAL FRACTURE [None]
  - SUBDURAL HAEMATOMA [None]
  - TONIC CLONIC MOVEMENTS [None]
